FAERS Safety Report 14634030 (Version 1)
Quarter: 2018Q1

REPORT INFORMATION
  Report Type: Report from Study
  Country: None (occurrence: US)
  Receive Date: 20180314
  Receipt Date: 20180314
  Transmission Date: 20180509
  Serious: Yes (Death, Other)
  Sender: FDA-Public Use
  Company Number: US-ABBVIE-18K-163-2288116-00

PATIENT
  Age: 82 Year
  Sex: Male

DRUGS (1)
  1. HUMIRA [Suspect]
     Active Substance: ADALIMUMAB
     Indication: COLITIS ULCERATIVE
     Route: 058
     Dates: start: 201702, end: 2017

REACTIONS (4)
  - Craniocerebral injury [Recovering/Resolving]
  - Fall [Recovering/Resolving]
  - Death [Fatal]
  - Aspiration [Unknown]

NARRATIVE: CASE EVENT DATE: 2017
